FAERS Safety Report 13075735 (Version 1)
Quarter: 2016Q4

REPORT INFORMATION
  Report Type: Spontaneous
  Country: US (occurrence: US)
  Receive Date: 20161229
  Receipt Date: 20161229
  Transmission Date: 20170207
  Serious: Yes (Hospitalization)
  Sender: FDA-Public Use
  Company Number: None

PATIENT
  Age: 37 Year
  Sex: Female
  Weight: 49.5 kg

DRUGS (3)
  1. HAIR SKIN AND NAILS [Concomitant]
  2. LINZESS [Suspect]
     Active Substance: LINACLOTIDE
     Indication: CONSTIPATION
     Dosage: ?          QUANTITY:2 CAPSULE(S);?
     Route: 048
     Dates: start: 20161220, end: 20161225
  3. MULTIVITAMIN [Concomitant]
     Active Substance: VITAMINS

REACTIONS (9)
  - Pruritus [None]
  - Dizziness [None]
  - Hypoaesthesia [None]
  - Feeling abnormal [None]
  - Face oedema [None]
  - Chest pain [None]
  - Flushing [None]
  - Malaise [None]
  - Paraesthesia [None]

NARRATIVE: CASE EVENT DATE: 20161228
